FAERS Safety Report 7241698-2 (Version None)
Quarter: 2011Q1

REPORT INFORMATION
  Report Type: 
  Country: None (occurrence: None)
  Receive Date: 20110124
  Receipt Date: 20110114
  Transmission Date: 20110831
  Serious: Yes (Hospitalization)
  Sender: FDA-Public Use
  Company Number: PHHY2011US00756

PATIENT
  Sex: Male
  Weight: 84 kg

DRUGS (10)
  1. PREDNISONE [Concomitant]
  2. OXYBUTYNIN [Concomitant]
  3. EXJADE [Suspect]
     Indication: CHRONIC LYMPHOCYTIC LEUKAEMIA
     Dosage: 1500 MG, QD
     Route: 048
     Dates: start: 20101126, end: 20110103
  4. ASPIRIN [Concomitant]
  5. FOLIC ACID [Concomitant]
  6. VITAMIN B-12 [Concomitant]
  7. LISINOPRIL [Concomitant]
  8. ZANTAC [Concomitant]
  9. AMLODIPINE [Concomitant]
  10. VENLAFAXINE [Concomitant]

REACTIONS (3)
  - INFECTION [None]
  - ANAEMIA [None]
  - CONSTIPATION [None]
